FAERS Safety Report 8111355-9 (Version None)
Quarter: 2012Q1

REPORT INFORMATION
  Report Type: 
  Country: None (occurrence: None)
  Receive Date: 20120203
  Receipt Date: 20110927
  Transmission Date: 20120608
  Serious: No
  Sender: FDA-Public Use
  Company Number: US-GLAXOSMITHKLINE-A0946193A

PATIENT
  Age: 16 Year
  Sex: Female

DRUGS (2)
  1. LAMICTAL [Suspect]
     Indication: CONVULSION
     Dosage: 300MG IN THE MORNING
     Route: 048
     Dates: start: 20070101
  2. TRILEPTAL [Concomitant]

REACTIONS (2)
  - VISION BLURRED [None]
  - DIZZINESS [None]
